FAERS Safety Report 5282601-4 (Version None)
Quarter: 2007Q1

REPORT INFORMATION
  Report Type: 
  Country: None (occurrence: None)
  Receive Date: 20070326
  Receipt Date: 20070313
  Transmission Date: 20070707
  Serious: Yes (Hospitalization)
  Sender: FDA-Public Use
  Company Number: B0463064A

PATIENT
  Age: 16 Year
  Sex: Female

DRUGS (2)
  1. MALARONE [Suspect]
     Dosage: TWICE PER DAY
  2. MEFLOQUINE [Concomitant]

REACTIONS (8)
  - CHILLS [None]
  - DISEASE RECURRENCE [None]
  - FATIGUE [None]
  - MALARIA [None]
  - NAUSEA [None]
  - PLASMODIUM FALCIPARUM INFECTION [None]
  - PYREXIA [None]
  - VOMITING [None]
